FAERS Safety Report 10221305 (Version 3)
Quarter: 2014Q3

REPORT INFORMATION
  Report Type: Spontaneous
  Country: US (occurrence: US)
  Receive Date: 20140606
  Receipt Date: 20140812
  Transmission Date: 20150326
  Serious: No
  Sender: FDA-Public Use
  Company Number: US-TEVA-485539USA

PATIENT
  Sex: Male

DRUGS (3)
  1. AZILECT [Suspect]
     Active Substance: RASAGILINE MESYLATE
     Route: 048
     Dates: end: 20140609
  2. SERTRALINE [Interacting]
     Active Substance: SERTRALINE HYDROCHLORIDE
  3. NORTRIPTYLINE [Concomitant]
     Active Substance: NORTRIPTYLINE

REACTIONS (6)
  - Dizziness [Unknown]
  - Hallucination [Unknown]
  - Drug interaction [Unknown]
  - Syncope [Unknown]
  - Condition aggravated [Unknown]
  - Cardiac disorder [Unknown]
